FAERS Safety Report 10420701 (Version 1)
Quarter: 2014Q3

REPORT INFORMATION
  Report Type: Spontaneous
  Country: US (occurrence: None)
  Receive Date: 20140829
  Receipt Date: 20140829
  Transmission Date: 20150326
  Serious: Yes (Other)
  Sender: FDA-Public Use
  Company Number: None

PATIENT
  Age: 65 Year
  Sex: Female
  Weight: 122.47 kg

DRUGS (1)
  1. TOLTERODINE TARTRATE. [Suspect]
     Active Substance: TOLTERODINE TARTRATE
     Indication: HYPERTONIC BLADDER
     Dosage: 1 PILL TWICE A DAY  TWICE DAILY  TAKEN BY MOUTH
     Route: 048
     Dates: start: 20140729, end: 20140802

REACTIONS (4)
  - Product substitution issue [None]
  - Burning sensation [None]
  - Dysuria [None]
  - Product quality issue [None]

NARRATIVE: CASE EVENT DATE: 20140802
